FAERS Safety Report 18989461 (Version 2)
Quarter: 2021Q1

REPORT INFORMATION
  Report Type: Spontaneous
  Country: TW (occurrence: TW)
  Receive Date: 20210310
  Receipt Date: 20210311
  Transmission Date: 20210420
  Serious: Yes (Hospitalization)
  Sender: FDA-Public Use
  Company Number: TW-BIOGEN-2021BI00986468

PATIENT
  Age: 51 Year
  Sex: Female
  Weight: 64 kg

DRUGS (4)
  1. TECFIDERA [Suspect]
     Active Substance: DIMETHYL FUMARATE
     Dosage: 120 MILLIGRAM IN THE MORNING AND 240 MILLIGRAM IN THE EVENING
     Route: 048
     Dates: start: 20200916, end: 20200922
  2. TECFIDERA [Suspect]
     Active Substance: DIMETHYL FUMARATE
     Dosage: MAINTENANCE DOSE
     Route: 048
     Dates: start: 20200923
  3. TECFIDERA [Suspect]
     Active Substance: DIMETHYL FUMARATE
     Indication: MULTIPLE SCLEROSIS
     Route: 048
     Dates: start: 20200909, end: 20200911
  4. TECFIDERA [Suspect]
     Active Substance: DIMETHYL FUMARATE
     Dosage: TITRATION DOSE
     Route: 048
     Dates: start: 20200912, end: 20200915

REACTIONS (2)
  - Multiple sclerosis relapse [Not Recovered/Not Resolved]
  - Prescribed underdose [Unknown]

NARRATIVE: CASE EVENT DATE: 20200909
